FAERS Safety Report 17971806 (Version 2)
Quarter: 2020Q3

REPORT INFORMATION
  Report Type: Other
  Country: US (occurrence: US)
  Receive Date: 20200702
  Receipt Date: 20200918
  Transmission Date: 20201103
  Serious: Yes (Other)
  Sender: FDA-Public Use
  Company Number: US-ROCHE-2631685

PATIENT
  Age: 59 Year
  Sex: Male

DRUGS (6)
  1. LEUCOVORIN. [Suspect]
     Active Substance: LEUCOVORIN
     Indication: RECTAL CANCER
     Route: 042
  2. PROCHLORPERAZINE. [Concomitant]
     Active Substance: PROCHLORPERAZINE
     Indication: NAUSEA
  3. BEVACIZUMAB. [Suspect]
     Active Substance: BEVACIZUMAB
     Indication: RECTAL CANCER
     Route: 042
  4. ONDANSETRON [Concomitant]
     Active Substance: ONDANSETRON
     Indication: NAUSEA
  5. FLOUROURACIL [Suspect]
     Active Substance: FLUOROURACIL
     Indication: RECTAL CANCER
     Route: 040
  6. OXALIPLATIN. [Suspect]
     Active Substance: OXALIPLATIN
     Indication: RECTAL CANCER
     Route: 042

REACTIONS (1)
  - Arteriospasm coronary [Recovered/Resolved]
